FAERS Safety Report 12876522 (Version 1)
Quarter: 2016Q4

REPORT INFORMATION
  Report Type: Spontaneous
  Country: US (occurrence: US)
  Receive Date: 20161021
  Receipt Date: 20161021
  Transmission Date: 20170207
  Serious: Yes (Hospitalization)
  Sender: FDA-Public Use
  Company Number: None

PATIENT
  Age: 65 Year
  Sex: Male
  Weight: 99.8 kg

DRUGS (1)
  1. ATORVASTATIN [Suspect]
     Active Substance: ATORVASTATIN
     Route: 048
     Dates: start: 20140121, end: 20160811

REACTIONS (10)
  - Ischaemic hepatitis [None]
  - Chest pain [None]
  - Bile duct obstruction [None]
  - Biliary colic [None]
  - Hepatitis viral [None]
  - Drug administration error [None]
  - Cholestatic liver injury [None]
  - Vomiting [None]
  - Nausea [None]
  - Bile duct stone [None]

NARRATIVE: CASE EVENT DATE: 20160621
